FAERS Safety Report 23951339 (Version 1)
Quarter: 2024Q2

REPORT INFORMATION
  Report Type: Spontaneous
  Country: US (occurrence: US)
  Receive Date: 20240607
  Receipt Date: 20240607
  Transmission Date: 20240716
  Serious: No
  Sender: FDA-Public Use
  Company Number: US-MYLANLABS-2024M1050262

PATIENT
  Sex: Female

DRUGS (2)
  1. ZOLOFT [Suspect]
     Active Substance: SERTRALINE HYDROCHLORIDE
     Indication: Product used for unknown indication
     Dosage: UNK
     Route: 065
  2. CAPLYTA [Suspect]
     Active Substance: LUMATEPERONE
     Indication: Product used for unknown indication
     Dosage: 42 MILLIGRAM, QD
     Route: 065

REACTIONS (1)
  - Tongue movement disturbance [Recovered/Resolved]
